FAERS Safety Report 25837833 (Version 2)
Quarter: 2025Q4

REPORT INFORMATION
  Report Type: Spontaneous
  Country: CA (occurrence: CA)
  Receive Date: 20250923
  Receipt Date: 20251113
  Transmission Date: 20260118
  Serious: Yes (Other)
  Sender: PFIZER
  Company Number: CA-PFIZER INC-202500185787

PATIENT
  Age: 26 Year
  Sex: Male

DRUGS (2)
  1. ABRILADA [Suspect]
     Active Substance: ADALIMUMAB-AFZB
     Indication: Ankylosing spondylitis
     Dosage: 40 MG, CYCLIC (EVERY 2 WEEKS)
     Route: 058
     Dates: start: 20250529
  2. ABRILADA [Suspect]
     Active Substance: ADALIMUMAB-AFZB
     Dosage: 40 MG, CYCLIC (EVERY 2 WEEK)
     Route: 058
     Dates: start: 2025

REACTIONS (2)
  - Colitis ulcerative [Unknown]
  - C-reactive protein increased [Unknown]
